FAERS Safety Report 23363428 (Version 1)
Quarter: 2024Q1

REPORT INFORMATION
  Report Type: Spontaneous
  Country: None (occurrence: US)
  Receive Date: 20240103
  Receipt Date: 20240103
  Transmission Date: 20240410
  Serious: No
  Sender: FDA-Public Use
  Company Number: US-STI Pharma LLC-2150113

PATIENT
  Age: 69 Year
  Sex: Female

DRUGS (1)
  1. ETHAMBUTOL HYDROCHLORIDE [Suspect]
     Active Substance: ETHAMBUTOL HYDROCHLORIDE

REACTIONS (1)
  - Optic neuritis [Unknown]
